FAERS Safety Report 6099118-X (Version None)
Quarter: 2009Q1

REPORT INFORMATION
  Report Type: 
  Country: None (occurrence: None)
  Receive Date: 20090302
  Receipt Date: 20090227
  Transmission Date: 20090719
  Serious: No
  Sender: FDA-Public Use
  Company Number: US-B.I. PHARMACEUTICALS,INC./RIDGEFIELD-2009-BP-02399BP

PATIENT
  Age: 60 Year
  Sex: Male

DRUGS (3)
  1. FLOMAX [Suspect]
     Indication: PROSTATITIS
     Dosage: .4MG
     Route: 048
     Dates: start: 20090101
  2. ALEVE [Concomitant]
     Indication: PROSTATITIS
  3. DOXYCYCLINE [Concomitant]
     Indication: PROSTATITIS

REACTIONS (1)
  - SEMEN VOLUME DECREASED [None]
